FAERS Safety Report 18471154 (Version 6)
Quarter: 2023Q1

REPORT INFORMATION
  Report Type: Report from Study
  Country: US (occurrence: None)
  Receive Date: 20201105
  Receipt Date: 20230207
  Transmission Date: 20230417
  Serious: Yes (Death, Hospitalization, Other)
  Sender: FDA-Public Use
  Company Number: US-ROCHE-2705584

PATIENT
  Age: 52 Year
  Sex: Female
  Weight: 108.7 kg

DRUGS (22)
  1. ATEZOLIZUMAB [Suspect]
     Active Substance: ATEZOLIZUMAB
     Indication: Breast cancer metastatic
     Dosage: ONGOING: NO, LAST ADMINISTERED ON:07-OCT-2020, ON DAY 1 AND 22
     Route: 041
     Dates: start: 20200424, end: 20201007
  2. PERTUZUMAB [Suspect]
     Active Substance: PERTUZUMAB
     Indication: Breast cancer metastatic
     Dosage: 840MG IV C1D1 ONLY, LOADING DOSE FOLLOWED BY MAINTENANCE DOSE 420 MG
     Route: 042
     Dates: start: 20200424, end: 20201007
  3. TRASTUZUMAB [Suspect]
     Active Substance: TRASTUZUMAB
     Indication: Breast cancer metastatic
     Dosage: 8MG/KG IV C1D1 ONLY LOADING DOSE, FOLLOWED BY MAINTENANCE DOSE OF 6 MG/KG, LAST ADMINISTERED ON:07-
     Route: 042
     Dates: start: 20200424, end: 20201007
  4. PACLITAXEL [Suspect]
     Active Substance: PACLITAXEL
     Indication: Breast cancer metastatic
     Dosage: ON DAY 1, 8, 15, 22, 29 AND 36?ONGOING: NO, ON DAYS 1, 8, 15, 22, 29, AND 36, LAST ADMINISTERED DATE
     Route: 042
     Dates: start: 20200424, end: 20201002
  5. FUROSEMIDE [Suspect]
     Active Substance: FUROSEMIDE
     Indication: Product used for unknown indication
     Route: 065
  6. ALPRAZOLAM [Concomitant]
     Active Substance: ALPRAZOLAM
  7. BUMETANIDE [Concomitant]
     Active Substance: BUMETANIDE
  8. CALCIUM CARBONATE [Concomitant]
     Active Substance: CALCIUM CARBONATE
  9. CHOLECALCIFEROL [Concomitant]
     Active Substance: CHOLECALCIFEROL
  10. ATROPINE\DIPHENOXYLATE [Concomitant]
     Active Substance: ATROPINE\DIPHENOXYLATE
  11. FENTANYL [Concomitant]
     Active Substance: FENTANYL
  12. FLUOCINONIDE [Concomitant]
     Active Substance: FLUOCINONIDE
  13. FOLIC ACID [Concomitant]
     Active Substance: FOLIC ACID
  14. GABAPENTIN [Concomitant]
     Active Substance: GABAPENTIN
  15. ACETAMINOPHEN\HYDROCODONE [Concomitant]
     Active Substance: ACETAMINOPHEN\HYDROCODONE
  16. LEVOTHYROXINE [Concomitant]
     Active Substance: LEVOTHYROXINE
  17. ONDANSETRON [Concomitant]
     Active Substance: ONDANSETRON
  18. POTASSIUM CHLORIDE [Concomitant]
     Active Substance: POTASSIUM CHLORIDE
  19. PROCHLORPERAZINE [Concomitant]
     Active Substance: PROCHLORPERAZINE
  20. TRAZODONE [Concomitant]
     Active Substance: TRAZODONE HYDROCHLORIDE
  21. TRIAMCINOLONE [Concomitant]
     Active Substance: TRIAMCINOLONE
  22. VENLAFAXINE [Concomitant]
     Active Substance: VENLAFAXINE HYDROCHLORIDE

REACTIONS (10)
  - Respiratory failure [Recovered/Resolved]
  - Sepsis [Fatal]
  - Hypotension [Unknown]
  - Dehydration [Recovered/Resolved]
  - Hypoxia [Recovered/Resolved]
  - Lymphocyte count decreased [Recovered/Resolved]
  - Fatigue [Recovered/Resolved]
  - Hypoalbuminaemia [Recovered/Resolved]
  - Hypokalaemia [Recovered/Resolved]
  - Pleural effusion [Recovered/Resolved]

NARRATIVE: CASE EVENT DATE: 20200927
